FAERS Safety Report 5167542-5 (Version None)
Quarter: 2006Q4

REPORT INFORMATION
  Report Type: 
  Country: None (occurrence: None)
  Receive Date: 20060830
  Receipt Date: 20060522
  Transmission Date: 20070319
  Serious: No
  Sender: FDA-Public Use
  Company Number: 224171

PATIENT
  Age: 52 Year
  Sex: Male
  Weight: 79.6 kg

DRUGS (4)
  1. XOLAIR [Suspect]
     Indication: ASTHMA
     Dosage: 450 MG Q2W SUBCUTANEOUS
     Route: 058
     Dates: start: 20040205, end: 20051222
  2. PULMICORT [Concomitant]
  3. ALBUTEROL INHALER (ALBUTEROL/ALBUTEROL SULFATE) [Concomitant]
  4. FORADIL [Concomitant]

REACTIONS (1)
  - HYPERSENSITIVITY [None]
